FAERS Safety Report 11239351 (Version 1)
Quarter: 2015Q3

REPORT INFORMATION
  Report Type: Spontaneous
  Country: US (occurrence: None)
  Receive Date: 20150701
  Receipt Date: 20150701
  Transmission Date: 20151125
  Serious: Yes (Life-Threatening, Hospitalization, Other)
  Sender: FDA-Public Use
  Company Number: None

PATIENT
  Age: 24 Year
  Sex: Female
  Weight: 58.97 kg

DRUGS (2)
  1. MULTI-VITAMIN FOR CALCIUM [Concomitant]
  2. SKYLA [Suspect]
     Active Substance: LEVONORGESTREL

REACTIONS (4)
  - Abortion spontaneous [None]
  - Reproductive tract disorder [None]
  - Ectopic pregnancy [None]
  - Pregnancy with implant contraceptive [None]

NARRATIVE: CASE EVENT DATE: 20150628
